FAERS Safety Report 12962270 (Version 1)
Quarter: 2016Q4

REPORT INFORMATION
  Report Type: Spontaneous
  Country: US (occurrence: US)
  Receive Date: 20161121
  Receipt Date: 20161121
  Transmission Date: 20170207
  Serious: No
  Sender: FDA-Public Use
  Company Number: US-PFIZER INC-2016535008

PATIENT
  Age: 8 Year
  Sex: Male

DRUGS (1)
  1. QUILLIVANT XR [Suspect]
     Active Substance: METHYLPHENIDATE HYDROCHLORIDE
     Dosage: 5 ML, UNK

REACTIONS (2)
  - Swelling face [Unknown]
  - Pruritus [Unknown]
